FAERS Safety Report 4565544-0 (Version None)
Quarter: 2005Q1

REPORT INFORMATION
  Report Type: 
  Country: None (occurrence: None)
  Receive Date: 20050125
  Receipt Date: 20050125
  Transmission Date: 20050727
  Serious: Yes (Death)
  Sender: FDA-Public Use
  Company Number: None

PATIENT
  Age: 55 Year
  Sex: Male
  Weight: 108.8633 kg

DRUGS (3)
  1. TRICOR [Suspect]
     Indication: HYPERLIPIDAEMIA
     Dosage: 150MG   DAILY  ORAL
     Route: 048
     Dates: start: 20040815, end: 20041101
  2. ALTACE [Suspect]
     Indication: HEAD INJURY
     Dosage: 5MG   DAILY   ORAL
     Route: 048
     Dates: start: 20030331, end: 20041101
  3. ALTACE [Suspect]
     Indication: HYPERTENSION
     Dosage: 5MG   DAILY   ORAL
     Route: 048
     Dates: start: 20030331, end: 20041101

REACTIONS (1)
  - PANCREATITIS NECROTISING [None]
